FAERS Safety Report 8536311-8 (Version None)
Quarter: 2012Q3

REPORT INFORMATION
  Report Type: 
  Country: None (occurrence: None)
  Receive Date: 20120725
  Receipt Date: 20120717
  Transmission Date: 20120928
  Serious: Yes (Hospitalization, Disabling, Other)
  Sender: FDA-Public Use
  Company Number: US-JNJFOC-20120608286

PATIENT
  Sex: Male

DRUGS (3)
  1. XARELTO [Suspect]
     Indication: KNEE ARTHROPLASTY
     Dosage: DOSE REPORTED AS ^STANDARD ADULT DOSE^ GIVEN ^12 HOURS POST OP^
     Route: 048
  2. XARELTO [Suspect]
     Indication: THROMBOSIS PROPHYLAXIS
     Dosage: DOSE REPORTED AS ^STANDARD ADULT DOSE^ GIVEN ^12 HOURS POST OP^
     Route: 048
  3. CELEBREX [Concomitant]

REACTIONS (1)
  - HAEMARTHROSIS [None]
